FAERS Safety Report 21168598 (Version 1)
Quarter: 2022Q3

REPORT INFORMATION
  Report Type: Report from Study
  Country: US (occurrence: US)
  Receive Date: 20220803
  Receipt Date: 20220803
  Transmission Date: 20221026
  Serious: Yes (Hospitalization, Other)
  Sender: FDA-Public Use
  Company Number: US-INCYTE CORPORATION-2022IN005061

PATIENT

DRUGS (1)
  1. JAKAFI [Suspect]
     Active Substance: RUXOLITINIB
     Indication: Essential thrombocythaemia
     Dosage: 10 MILLIGRAM ONCE DAILY
     Route: 048

REACTIONS (4)
  - Mitral valve incompetence [Unknown]
  - Cardiac disorder [Unknown]
  - Thrombosis [Unknown]
  - Off label use [Unknown]

NARRATIVE: CASE EVENT DATE: 20220520
